FAERS Safety Report 16832776 (Version 1)
Quarter: 2019Q3

REPORT INFORMATION
  Report Type: Report from Study
  Country: None (occurrence: BE)
  Receive Date: 20190920
  Receipt Date: 20190920
  Transmission Date: 20191005
  Serious: Yes (Hospitalization)
  Sender: FDA-Public Use
  Company Number: BE-BIOVITRUM-2019BE3010

PATIENT
  Age: 21 Year
  Sex: Female

DRUGS (1)
  1. ORFADIN [Suspect]
     Active Substance: NITISINONE
     Indication: TYROSINAEMIA
     Route: 065
     Dates: start: 199803

REACTIONS (3)
  - Porphyria [Unknown]
  - Succinylacetone increased [Unknown]
  - Amino acid level increased [Unknown]

NARRATIVE: CASE EVENT DATE: 201908
